FAERS Safety Report 15225684 (Version 2)
Quarter: 2024Q4

REPORT INFORMATION
  Report Type: Spontaneous
  Country: DE (occurrence: DE)
  Receive Date: 20180801
  Receipt Date: 20241003
  Transmission Date: 20250115
  Serious: Yes (Hospitalization, Other)
  Sender: RANBAXY
  Company Number: DE-EMA-20110318-RAEVHUMANWT-113838138

PATIENT
  Age: 74 Year
  Sex: Male

DRUGS (10)
  1. MIRTAZAPINE [Suspect]
     Active Substance: MIRTAZAPINE
     Indication: Major depression
     Dosage: HIGH DOSE ()
     Route: 065
  2. SERTRALINE [Suspect]
     Active Substance: SERTRALINE HYDROCHLORIDE
     Indication: Major depression
     Dosage: HIGH-DOSE ()
     Route: 065
  3. VENLAFAXINE [Suspect]
     Active Substance: VENLAFAXINE HYDROCHLORIDE
     Indication: Major depression
     Dosage: HIGH-DOSE TREATMENT ()
     Route: 065
  4. CARBAMAZEPINE [Suspect]
     Active Substance: CARBAMAZEPINE
     Indication: Depression
     Dosage: 600 MG, DAILY
     Route: 048
  5. CARBAMAZEPINE [Suspect]
     Active Substance: CARBAMAZEPINE
     Indication: Bipolar I disorder
  6. CLOMIPRAMINE [Suspect]
     Active Substance: CLOMIPRAMINE
     Indication: Major depression
     Dosage: DAILY DOSE: 175 MG MILLIGRAM(S) EVERY DAY
     Route: 048
  7. LIOTHYRONINE SODIUM [Suspect]
     Active Substance: LIOTHYRONINE SODIUM
     Indication: Hypothyroidism
     Dosage: DAILY DOSE: 75 MG MILLIGRAM(S) EVERY DAY
     Route: 048
  8. CARBAMAZEPINE [Suspect]
     Active Substance: CARBAMAZEPINE
     Indication: Bipolar I disorder
     Dosage: 600 MG, QD
     Route: 065
  9. LORAZEPAM [Concomitant]
     Active Substance: LORAZEPAM
     Indication: Depression
     Dosage: DAILY DOSE: 0.5 MG MILLIGRAM(S) EVERY DAY
     Route: 048
  10. LIOTHYRONE [Concomitant]
     Indication: Product used for unknown indication
     Dosage: UNK
     Route: 065

REACTIONS (22)
  - Bipolar disorder [Recovered/Resolved]
  - Drug ineffective [Recovered/Resolved]
  - Mood altered [Recovered/Resolved]
  - Major depression [Unknown]
  - Insomnia [Recovered/Resolved]
  - Depression [Recovered/Resolved]
  - Psychomotor hyperactivity [Recovered/Resolved]
  - Pressure of speech [Recovered/Resolved]
  - Rebound effect [Recovered/Resolved]
  - Drug withdrawal syndrome [Recovered/Resolved]
  - Psychomotor hyperactivity [Recovered/Resolved]
  - Feelings of worthlessness [Unknown]
  - Mania [Recovered/Resolved]
  - Incoherent [Recovered/Resolved]
  - Psychomotor retardation [Unknown]
  - Asthenia [Unknown]
  - Delusion [Recovered/Resolved]
  - Loose associations [Recovered/Resolved]
  - Liver function test abnormal [Unknown]
  - Mania [Recovered/Resolved]
  - Anhedonia [Unknown]
  - Speech disorder [Recovered/Resolved]
